FAERS Safety Report 4311176-9 (Version None)
Quarter: 2004Q1

REPORT INFORMATION
  Report Type: 
  Country: None (occurrence: None)
  Receive Date: 20040301
  Receipt Date: 20040119
  Transmission Date: 20041129
  Serious: No
  Sender: FDA-Public Use
  Company Number: WAES 0401USA01391

PATIENT
  Age: 71 Year
  Sex: Female

DRUGS (1)
  1. ZETIA [Suspect]
     Dosage: 10 MG/ DAILY/ PO
     Route: 048
     Dates: start: 20031115

REACTIONS (3)
  - ERYTHEMA [None]
  - HYPOTRICHOSIS [None]
  - RASH SCALY [None]
